FAERS Safety Report 4768643-3 (Version None)
Quarter: 2005Q3

REPORT INFORMATION
  Report Type: 
  Country: None (occurrence: None)
  Receive Date: 20050913
  Receipt Date: 20050902
  Transmission Date: 20060218
  Serious: Yes (Hospitalization)
  Sender: FDA-Public Use
  Company Number: 2005090002

PATIENT
  Age: 73 Year
  Sex: Female

DRUGS (1)
  1. ASTELIN [Suspect]
     Dosage: 2 SPRAYS (274 MCG) BID, NASALLY
     Route: 045
     Dates: start: 20050501

REACTIONS (3)
  - ASTHENIA [None]
  - CONVULSION [None]
  - LOSS OF CONSCIOUSNESS [None]
